FAERS Safety Report 14795674 (Version 2)
Quarter: 2018Q3

REPORT INFORMATION
  Report Type: Report from Study
  Country: US (occurrence: US)
  Receive Date: 20180423
  Receipt Date: 20180719
  Transmission Date: 20181010
  Serious: No
  Sender: FDA-Public Use
  Company Number: US-AMGEN-USASL2018023315

PATIENT
  Age: 75 Year
  Sex: Female

DRUGS (3)
  1. REPATHA [Suspect]
     Active Substance: EVOLOCUMAB
     Indication: HYPERCHOLESTEROLAEMIA
  2. EPIPEN [Concomitant]
     Active Substance: EPINEPHRINE
     Indication: SWOLLEN TONGUE
  3. REPATHA [Suspect]
     Active Substance: EVOLOCUMAB
     Indication: BLOOD CHOLESTEROL INCREASED
     Dosage: 140 MG, Q2WK
     Route: 058
     Dates: start: 20170207

REACTIONS (9)
  - Abdominal pain upper [Unknown]
  - Swollen tongue [Unknown]
  - Nausea [Unknown]
  - Malaise [Unknown]
  - Feeling abnormal [Unknown]
  - Muscle spasms [Unknown]
  - Hot flush [Unknown]
  - Arthralgia [Unknown]
  - Fear [Unknown]

NARRATIVE: CASE EVENT DATE: 20170214
